FAERS Safety Report 15669799 (Version 1)
Quarter: 2018Q4

REPORT INFORMATION
  Report Type: Report from Study
  Country: ES (occurrence: ES)
  Receive Date: 20181129
  Receipt Date: 20181129
  Transmission Date: 20190205
  Serious: Yes (Other)
  Sender: FDA-Public Use
  Company Number: ES-PFIZER INC-2018489394

PATIENT
  Age: 61 Year
  Sex: Female
  Weight: 96 kg

DRUGS (7)
  1. MYCOPHENOLATE [Concomitant]
     Active Substance: MYCOPHENOLIC ACID
     Indication: LIVER TRANSPLANT
     Dosage: UNK
     Route: 065
     Dates: start: 20170528
  2. METHYLPREDNISOLONE SODIUM SUCCINATE. [Suspect]
     Active Substance: METHYLPREDNISOLONE SODIUM SUCCINATE
     Dosage: 20 MG, 1X/DAY
     Route: 042
     Dates: start: 20170529, end: 20170601
  3. ENVARSUS XR [Suspect]
     Active Substance: TACROLIMUS
     Dosage: 3.75 MG, 1X/DAY
     Route: 048
     Dates: start: 20170603
  4. PREDNISONE. [Suspect]
     Active Substance: PREDNISONE
     Indication: LIVER TRANSPLANT
     Dosage: 20 MG, 1X/DAY
     Route: 065
     Dates: start: 20170601
  5. ENVARSUS XR [Suspect]
     Active Substance: TACROLIMUS
     Indication: LIVER TRANSPLANT
     Dosage: 3 MG, 1X/DAY
     Route: 065
     Dates: start: 20170602
  6. PREDNISONE. [Suspect]
     Active Substance: PREDNISONE
     Dosage: 20 MG, 1X/DAY
     Route: 065
     Dates: start: 20170605
  7. METHYLPREDNISOLONE SODIUM SUCCINATE. [Suspect]
     Active Substance: METHYLPREDNISOLONE SODIUM SUCCINATE
     Indication: LIVER TRANSPLANT
     Dosage: 500 MG, UNK
     Route: 042

REACTIONS (2)
  - Diabetes mellitus [Recovered/Resolved]
  - Condition aggravated [Recovered/Resolved]

NARRATIVE: CASE EVENT DATE: 20170605
